FAERS Safety Report 25735879 (Version 2)
Quarter: 2025Q4

REPORT INFORMATION
  Report Type: Spontaneous
  Country: GB (occurrence: GB)
  Receive Date: 20250828
  Receipt Date: 20251010
  Transmission Date: 20260117
  Serious: Yes (Congenital Anomaly, Other)
  Sender: TORRENT PHARMA INC.
  Company Number: None

PATIENT
  Sex: Male

DRUGS (2)
  1. TOPIRAMATE [Suspect]
     Active Substance: TOPIRAMATE
     Indication: Product used for unknown indication
     Dosage: 100MG MORNING AND NIGHT ON 01/01/2013, TABLET
     Route: 064
  2. DIAMOX SEQUELS [Concomitant]
     Active Substance: ACETAZOLAMIDE
     Indication: Product used for unknown indication
     Dosage: ON 01/01/2013
     Route: 064

REACTIONS (9)
  - Foetal exposure during pregnancy [Unknown]
  - Autism spectrum disorder [Not Recovered/Not Resolved]
  - Lung disorder [Not Recovered/Not Resolved]
  - Rhinitis allergic [Not Recovered/Not Resolved]
  - Testicular cyst [Unknown]
  - Cryptorchism [Unknown]
  - Gastrointestinal perforation [Unknown]
  - Foetal exposure via father [Unknown]
  - Developmental delay [Unknown]

NARRATIVE: CASE EVENT DATE: 20140905
